FAERS Safety Report 7356349-6 (Version None)
Quarter: 2011Q1

REPORT INFORMATION
  Report Type: 
  Country: None (occurrence: None)
  Receive Date: 20110316
  Receipt Date: 20110310
  Transmission Date: 20110831
  Serious: Yes (Other)
  Sender: FDA-Public Use
  Company Number: US-ABBOTT-11P-163-0710872-00

PATIENT
  Sex: Male
  Weight: 89.438 kg

DRUGS (10)
  1. AMITRIPTLINE HYDROCHLORIDE TAB [Concomitant]
     Indication: PRODUCT USED FOR UNKNOWN INDICATION
  2. CELEXA [Concomitant]
     Indication: PRODUCT USED FOR UNKNOWN INDICATION
  3. JANUMET [Concomitant]
     Indication: DIABETES MELLITUS
  4. HUMIRA [Suspect]
     Indication: PSORIATIC ARTHROPATHY
     Dates: end: 20101022
  5. NOVOLOG [Concomitant]
     Indication: DIABETES MELLITUS
  6. ACTOS [Concomitant]
     Indication: DIABETES MELLITUS
  7. HUMIRA [Suspect]
     Indication: PSORIASIS
  8. LANTUS [Concomitant]
     Indication: DIABETES MELLITUS
  9. LIPITOR [Concomitant]
     Indication: PRODUCT USED FOR UNKNOWN INDICATION
  10. FLECAINIDE ACETATE [Concomitant]
     Indication: PRODUCT USED FOR UNKNOWN INDICATION

REACTIONS (3)
  - PSORIATIC ARTHROPATHY [None]
  - ROTATOR CUFF SYNDROME [None]
  - TENDON RUPTURE [None]
